FAERS Safety Report 15073398 (Version 1)
Quarter: 2018Q2

REPORT INFORMATION
  Report Type: Spontaneous
  Country: US (occurrence: US)
  Receive Date: 20180627
  Receipt Date: 20180627
  Transmission Date: 20180711
  Serious: No
  Sender: FDA-Public Use
  Company Number: US-PFIZER INC-2017534214

PATIENT
  Age: 52 Year
  Sex: Female
  Weight: 77.98 kg

DRUGS (10)
  1. DOCETAXEL. [Suspect]
     Active Substance: DOCETAXEL
     Dosage: 145 MG, UNK
     Dates: start: 20120629, end: 20120629
  2. DOCETAXEL. [Suspect]
     Active Substance: DOCETAXEL
     Dosage: 145 MG, UNK
     Dates: start: 20120622, end: 20120622
  3. PARAPLATIN [Concomitant]
     Active Substance: CARBOPLATIN
     Dosage: 550 MG, UNK
     Dates: start: 20120802, end: 20120802
  4. DOCETAXEL. [Suspect]
     Active Substance: DOCETAXEL
     Dosage: 115 MG, UNK
     Dates: start: 20120802, end: 20120802
  5. PARAPLATIN [Concomitant]
     Active Substance: CARBOPLATIN
     Indication: BREAST CANCER
     Dosage: 685 MG, UNK
     Dates: start: 20120601, end: 20120601
  6. PARAPLATIN [Concomitant]
     Active Substance: CARBOPLATIN
     Dosage: 685 MG, UNK
     Dates: start: 20120622, end: 20120622
  7. PARAPLATIN [Concomitant]
     Active Substance: CARBOPLATIN
     Dosage: 685 MG, UNK
     Dates: start: 20120629, end: 20120629
  8. DOCETAXEL. [Suspect]
     Active Substance: DOCETAXEL
     Indication: BREAST CANCER
     Dosage: 145 MG, UNK
     Dates: start: 20120601, end: 20120601
  9. DOCETAXEL. [Suspect]
     Active Substance: DOCETAXEL
     Dosage: 145 MG, UNK
     Dates: start: 20120705, end: 20120705
  10. PARAPLATIN [Concomitant]
     Active Substance: CARBOPLATIN
     Dosage: 685 MG, UNK
     Dates: start: 20120705, end: 20120705

REACTIONS (2)
  - Depression [Unknown]
  - Alopecia [Not Recovered/Not Resolved]

NARRATIVE: CASE EVENT DATE: 201303
